FAERS Safety Report 25202496 (Version 1)
Quarter: 2025Q2

REPORT INFORMATION
  Report Type: Spontaneous
  Country: FR (occurrence: FR)
  Receive Date: 20250416
  Receipt Date: 20250416
  Transmission Date: 20250717
  Serious: Yes (Hospitalization)
  Sender: AUROBINDO
  Company Number: FR-AFSSAPS-NY2025000400

PATIENT
  Age: 53 Year
  Sex: Female
  Weight: 88 kg

DRUGS (33)
  1. CARBOPLATIN [Suspect]
     Active Substance: CARBOPLATIN
     Indication: Disseminated large cell lymphoma
     Route: 042
     Dates: start: 20240417, end: 20240417
  2. CARBOPLATIN [Suspect]
     Active Substance: CARBOPLATIN
     Route: 042
     Dates: start: 20240531, end: 20240531
  3. CARBOPLATIN [Suspect]
     Active Substance: CARBOPLATIN
     Route: 042
     Dates: start: 20241024, end: 20241024
  4. RITUXIMAB [Suspect]
     Active Substance: RITUXIMAB
     Indication: Disseminated large cell lymphoma
     Route: 042
     Dates: start: 20240130, end: 20240130
  5. RITUXIMAB [Suspect]
     Active Substance: RITUXIMAB
     Route: 042
     Dates: start: 20240305, end: 20240305
  6. RITUXIMAB [Suspect]
     Active Substance: RITUXIMAB
     Route: 042
     Dates: start: 20240417, end: 20240417
  7. RITUXIMAB [Suspect]
     Active Substance: RITUXIMAB
     Route: 042
     Dates: start: 20240531, end: 20240531
  8. RITUXIMAB [Suspect]
     Active Substance: RITUXIMAB
     Route: 042
     Dates: start: 20240909, end: 20240909
  9. RITUXIMAB [Suspect]
     Active Substance: RITUXIMAB
     Route: 042
     Dates: start: 20241023, end: 20241023
  10. RITUXIMAB [Suspect]
     Active Substance: RITUXIMAB
     Route: 042
     Dates: start: 20241122, end: 20241122
  11. RITUXIMAB [Suspect]
     Active Substance: RITUXIMAB
     Route: 042
     Dates: start: 20241227, end: 20241227
  12. CYTARABINE [Suspect]
     Active Substance: CYTARABINE
     Indication: Disseminated large cell lymphoma
     Route: 042
     Dates: start: 20240417, end: 20240418
  13. CYTARABINE [Suspect]
     Active Substance: CYTARABINE
     Route: 042
     Dates: start: 20240531, end: 20240601
  14. METHOTREXATE [Concomitant]
     Active Substance: METHOTREXATE
     Indication: Disseminated large cell lymphoma
     Route: 042
     Dates: start: 20240130, end: 20240130
  15. METHOTREXATE [Concomitant]
     Active Substance: METHOTREXATE
     Route: 042
     Dates: start: 20240214, end: 20240214
  16. METHOTREXATE [Concomitant]
     Active Substance: METHOTREXATE
     Route: 042
     Dates: start: 20240305, end: 20240305
  17. METHOTREXATE [Concomitant]
     Active Substance: METHOTREXATE
     Route: 042
     Dates: start: 20241122, end: 20241122
  18. METHOTREXATE [Concomitant]
     Active Substance: METHOTREXATE
     Route: 042
     Dates: start: 20241206, end: 20241206
  19. METHOTREXATE [Concomitant]
     Active Substance: METHOTREXATE
     Route: 042
     Dates: start: 20241227, end: 20241227
  20. VINCRISTINE SULFATE [Concomitant]
     Active Substance: VINCRISTINE SULFATE
     Indication: Disseminated large cell lymphoma
     Route: 042
     Dates: start: 20240130, end: 20240130
  21. VINCRISTINE SULFATE [Concomitant]
     Active Substance: VINCRISTINE SULFATE
     Route: 042
     Dates: start: 20240214, end: 20240214
  22. VINCRISTINE SULFATE [Concomitant]
     Active Substance: VINCRISTINE SULFATE
     Route: 042
     Dates: start: 20240305, end: 20240305
  23. VINCRISTINE SULFATE [Concomitant]
     Active Substance: VINCRISTINE SULFATE
     Route: 042
     Dates: start: 20241122, end: 20241122
  24. VINCRISTINE SULFATE [Concomitant]
     Active Substance: VINCRISTINE SULFATE
     Route: 042
     Dates: start: 20241206, end: 20241206
  25. VINCRISTINE SULFATE [Concomitant]
     Active Substance: VINCRISTINE SULFATE
     Route: 042
     Dates: start: 20241227, end: 20241227
  26. PROCARBAZINE HYDROCHLORIDE [Concomitant]
     Active Substance: PROCARBAZINE HYDROCHLORIDE
     Indication: Disseminated large cell lymphoma
     Dosage: 150 MILLIGRAM, ONCE A DAY
     Route: 048
     Dates: start: 20240130, end: 20240206
  27. PROCARBAZINE HYDROCHLORIDE [Concomitant]
     Active Substance: PROCARBAZINE HYDROCHLORIDE
     Dosage: 150 MILLIGRAM, ONCE A DAY (PROTOCOLE R-DHAP)
     Route: 048
     Dates: start: 20240305, end: 20240312
  28. PROCARBAZINE HYDROCHLORIDE [Concomitant]
     Active Substance: PROCARBAZINE HYDROCHLORIDE
     Dosage: 150 MILLIGRAM, ONCE A DAY (R-MPV)
     Route: 048
     Dates: start: 20241122, end: 20241129
  29. PROCARBAZINE HYDROCHLORIDE [Concomitant]
     Active Substance: PROCARBAZINE HYDROCHLORIDE
     Dosage: 150 MILLIGRAM, ONCE A DAY (R-MPV)
     Route: 048
     Dates: start: 20241227, end: 20250103
  30. ZOPICLONE [Concomitant]
     Active Substance: ZOPICLONE
     Indication: Insomnia
     Dosage: 3.75 MILLIGRAM, ONCE A DAY
     Route: 048
  31. GABAPENTIN [Concomitant]
     Active Substance: GABAPENTIN
     Indication: Neuralgia
     Dosage: 300 MILLIGRAM, TWO TIMES A DAY
     Route: 048
  32. VALACYCLOVIR HYDROCHLORIDE [Concomitant]
     Active Substance: VALACYCLOVIR HYDROCHLORIDE
     Indication: Opportunistic infection prophylaxis
     Dosage: 500 MILLIGRAM, TWO TIMES A DAY
     Route: 048
  33. BACTRIM [Concomitant]
     Active Substance: SULFAMETHOXAZOLE\TRIMETHOPRIM
     Indication: Opportunistic infection prophylaxis
     Dosage: 1 DOSAGE FORM, EVERY OTHER DAY
     Route: 048

REACTIONS (1)
  - Pulmonary granuloma [Not Recovered/Not Resolved]

NARRATIVE: CASE EVENT DATE: 20240620
